FAERS Safety Report 4285732-0 (Version None)
Quarter: 2004Q1

REPORT INFORMATION
  Report Type: 
  Country: None (occurrence: None)
  Receive Date: 20040203
  Receipt Date: 20040122
  Transmission Date: 20041129
  Serious: Yes (Disabling, Other)
  Sender: FDA-Public Use
  Company Number: 2004005310

PATIENT
  Age: 65 Year
  Sex: Male
  Weight: 103 kg

DRUGS (3)
  1. AMLODIPINE [Suspect]
     Indication: HYPERTENSION
     Dosage: ORAL
     Route: 048
     Dates: start: 20020510, end: 20020627
  2. RAMIPRIL [Concomitant]
  3. PARAMOL-118 (PARACETAMOL, DIHYDROCODEINE BITARTRATE) [Concomitant]

REACTIONS (1)
  - SERONEGATIVE ARTHRITIS [None]
